FAERS Safety Report 9019557 (Version 1)
Quarter: 2013Q1

REPORT INFORMATION
  Report Type: Spontaneous
  Country: US (occurrence: US)
  Receive Date: 20130118
  Receipt Date: 20130118
  Transmission Date: 20140127
  Serious: No
  Sender: FDA-Public Use
  Company Number: US-ASTRAZENECA-2013SE03354

PATIENT
  Age: 80 Year
  Sex: Female
  Weight: 44 kg

DRUGS (3)
  1. SYMBICORT [Suspect]
     Indication: CHRONIC OBSTRUCTIVE PULMONARY DISEASE
     Dosage: 1 PUFF 2 TIMES DAILY
     Route: 055
     Dates: start: 2012
  2. PROTONIX [Concomitant]
     Indication: ABDOMINAL DISCOMFORT
  3. SUCRALFATE [Concomitant]
     Indication: ABDOMINAL DISCOMFORT

REACTIONS (3)
  - Candida infection [Unknown]
  - Oropharyngeal pain [Unknown]
  - Off label use [Unknown]
